FAERS Safety Report 10082130 (Version 1)
Quarter: 2014Q2

REPORT INFORMATION
  Report Type: Spontaneous
  Country: US (occurrence: US)
  Receive Date: 20140416
  Receipt Date: 20140416
  Transmission Date: 20141212
  Serious: Yes (Hospitalization, Other)
  Sender: FDA-Public Use
  Company Number: US-ACTAVIS-2014-07301

PATIENT
  Age: 42 Year
  Sex: Male

DRUGS (3)
  1. CALCIUM CARBONATE (UNKNOWN) [Suspect]
     Indication: GASTROOESOPHAGEAL REFLUX DISEASE
     Dosage: 6-8 GRAMS DAILY, 4-5 DAYS A WEEK ON AVERAGE, FOR 8-10 MONTHS
     Route: 065
  2. LOSARTAN POTASSIUM (WATSON LABORATORIES) [Suspect]
     Indication: HYPERTENSION
     Dosage: UNKNOWN
     Route: 065
  3. HYDROCHLOROTHIAZIDE (WATSON LABORATORIES) [Suspect]
     Indication: HYPERTENSION
     Dosage: UNKNOWN
     Route: 065

REACTIONS (2)
  - Milk-alkali syndrome [Recovering/Resolving]
  - Overdose [Recovering/Resolving]
